FAERS Safety Report 10085535 (Version 2)
Quarter: 2014Q2

REPORT INFORMATION
  Report Type: Report from Study
  Country: US (occurrence: US)
  Receive Date: 20140418
  Receipt Date: 20140514
  Transmission Date: 20141212
  Serious: Yes (Other)
  Sender: FDA-Public Use
  Company Number: US-BIOGENIDEC-2014BI034994

PATIENT
  Age: 75 Year
  Sex: Female

DRUGS (2)
  1. TECFIDERA [Suspect]
     Indication: MULTIPLE SCLEROSIS
     Route: 048
     Dates: start: 201306
  2. MONTELUKAST [Concomitant]

REACTIONS (8)
  - Knee arthroplasty [Unknown]
  - Flushing [Unknown]
  - Feeling hot [Unknown]
  - Hyperhidrosis [Unknown]
  - Chills [Unknown]
  - Vomiting [Unknown]
  - Hot flush [Not Recovered/Not Resolved]
  - Fatigue [Unknown]
